FAERS Safety Report 21798744 (Version 1)
Quarter: 2022Q4

REPORT INFORMATION
  Report Type: Report from Study
  Country: US (occurrence: US)
  Receive Date: 20221230
  Receipt Date: 20221230
  Transmission Date: 20230113
  Serious: No
  Sender: FDA-Public Use
  Company Number: US-ABBVIE-4254127

PATIENT
  Sex: Male

DRUGS (6)
  1. VENCLEXTA [Suspect]
     Active Substance: VENETOCLAX
     Indication: Chronic lymphocytic leukaemia
     Route: 048
  2. VITAMIN D [Concomitant]
     Active Substance: VITAMIN D NOS
     Indication: Product used for unknown indication
     Route: 065
  3. Allopurinol Oral Tablet 100 MG [Concomitant]
     Indication: Product used for unknown indication
     Route: 048
  4. Myrbetriq Oral Tablet Extended Rele 25 mg [Concomitant]
     Indication: Product used for unknown indication
     Dosage: EXTENDED RELE 25 MG
     Route: 048
  5. Crestor Oral Tablet 10 MG [Concomitant]
     Indication: Product used for unknown indication
     Route: 048
  6. B Complex-B12 Oral Tablet [Concomitant]
     Indication: Product used for unknown indication
     Route: 048

REACTIONS (1)
  - Fatigue [Unknown]
